FAERS Safety Report 10560037 (Version 1)
Quarter: 2014Q4

REPORT INFORMATION
  Report Type: Spontaneous
  Country: US (occurrence: None)
  Receive Date: 20141030
  Receipt Date: 20141030
  Transmission Date: 20150529
  Serious: Yes (Hospitalization)
  Sender: FDA-Public Use
  Company Number: OTH-SPN-1998004

PATIENT
  Age: 11 Year
  Sex: Female

DRUGS (3)
  1. CYSTADANE [Suspect]
     Active Substance: BETAINE
     Indication: HOMOCYSTINURIA
     Dates: start: 198710
  2. COUMADIN WARFARIN SODIUM [Concomitant]
  3. ASPIRIN ACETYLSALICYLIC ACID [Concomitant]
     Active Substance: ASPIRIN

REACTIONS (5)
  - Brain oedema [None]
  - Hypermethioninaemia [None]
  - Aspartate aminotransferase increased [None]
  - Feeding disorder [None]
  - Alanine aminotransferase increased [None]

NARRATIVE: CASE EVENT DATE: 199809
